FAERS Safety Report 6013020-0 (Version None)
Quarter: 2008Q4

REPORT INFORMATION
  Report Type: 
  Country: None (occurrence: None)
  Receive Date: 20081219
  Receipt Date: 20081210
  Transmission Date: 20090506
  Serious: Yes (Hospitalization, Other)
  Sender: FDA-Public Use
  Company Number: BR-PFIZER INC-2004067461

PATIENT

DRUGS (6)
  1. LIPITOR [Suspect]
     Route: 048
     Dates: start: 20030901, end: 20031201
  2. LATANOPROST [Suspect]
     Dosage: 3 UG, 1X/DAY
     Route: 047
     Dates: start: 20081124
  3. AZATHIOPRINE [Concomitant]
     Route: 048
  4. URSODIOL [Concomitant]
     Route: 048
  5. PREDNISONE TAB [Concomitant]
     Route: 048
  6. CORTISONE ACETATE [Concomitant]
     Route: 048
     Dates: start: 20040601

REACTIONS (3)
  - AUTOIMMUNE HEPATITIS [None]
  - HEPATOMEGALY [None]
  - LIVER DISORDER [None]
